FAERS Safety Report 22231569 (Version 1)
Quarter: 2023Q2

REPORT INFORMATION
  Report Type: Spontaneous
  Country: IT (occurrence: IT)
  Receive Date: 20230420
  Receipt Date: 20230420
  Transmission Date: 20230722
  Serious: Yes (Other)
  Sender: FDA-Public Use
  Company Number: None

PATIENT
  Age: 44 Year
  Sex: Male

DRUGS (2)
  1. BISOPROLOL [Suspect]
     Active Substance: BISOPROLOL
     Indication: Hypertension
     Dosage: 5 MILLIGRAM DAILY; 1 CP / DAY
     Route: 065
     Dates: start: 20230204
  2. AMLODIPINE [Suspect]
     Active Substance: AMLODIPINE BESYLATE
     Indication: Hypertension
     Dosage: 5 MILLIGRAM DAILY;
     Route: 065
     Dates: start: 20230204

REACTIONS (1)
  - Gravitational oedema [Recovered/Resolved]

NARRATIVE: CASE EVENT DATE: 20230207
